FAERS Safety Report 6369734-6 (Version None)
Quarter: 2009Q3

REPORT INFORMATION
  Report Type: 
  Country: None (occurrence: None)
  Receive Date: 20090923
  Receipt Date: 20090910
  Transmission Date: 20100115
  Serious: Yes (Life-Threatening, Other)
  Sender: FDA-Public Use
  Company Number: IT-PFIZER INC-2009160974

PATIENT
  Age: 79 Year

DRUGS (1)
  1. DALACIN [Suspect]
     Dosage: 1800 MG, UNK
     Route: 042
     Dates: start: 20090115, end: 20090115

REACTIONS (1)
  - PHARYNGEAL OEDEMA [None]
